FAERS Safety Report 9801635 (Version 3)
Quarter: 2014Q1

REPORT INFORMATION
  Report Type: Report from Study
  Country: US (occurrence: US)
  Receive Date: 20140107
  Receipt Date: 20140116
  Transmission Date: 20141002
  Serious: Yes (Hospitalization)
  Sender: FDA-Public Use
  Company Number: US-JNJFOC-20140100641

PATIENT
  Age: 17 Year
  Sex: Female
  Weight: 45.6 kg

DRUGS (4)
  1. REMICADE [Suspect]
     Indication: COLITIS ULCERATIVE
     Route: 042
     Dates: start: 20110425, end: 20120911
  2. 5-ASA [Concomitant]
     Route: 048
  3. DEXILANT [Concomitant]
     Route: 065
  4. HUMIRA [Concomitant]
     Route: 065
     Dates: start: 20130327

REACTIONS (1)
  - Colitis ulcerative [Recovered/Resolved]
